FAERS Safety Report 8111295 (Version 3)
Quarter: 2014Q3

REPORT INFORMATION
  Report Type: Spontaneous
  Country: US (occurrence: US)
  Receive Date: 20110829
  Receipt Date: 20140711
  Transmission Date: 20150326
  Serious: Yes (Hospitalization)
  Sender: FDA-Public Use
  Company Number: US-GLAXOSMITHKLINE-A0897820A

PATIENT
  Sex: Male
  Weight: 95.5 kg

DRUGS (2)
  1. AVANDIA [Suspect]
     Active Substance: ROSIGLITAZONE MALEATE
     Indication: DIABETES MELLITUS
     Dosage: 4MG PER DAY
     Route: 048
     Dates: start: 200103, end: 200702
  2. HUMULIN NOS [Concomitant]
     Active Substance: INSULIN HUMAN

REACTIONS (5)
  - Peripheral vascular disorder [Unknown]
  - Cardiac disorder [Unknown]
  - Hyperlipidaemia [Unknown]
  - Cardiac failure congestive [Unknown]
  - Vascular injury [Unknown]
